FAERS Safety Report 25310978 (Version 1)
Quarter: 2025Q2

REPORT INFORMATION
  Report Type: Spontaneous
  Country: IN (occurrence: None)
  Receive Date: 20250514
  Receipt Date: 20250514
  Transmission Date: 20250716
  Serious: Yes (Hospitalization)
  Sender: ENCUBE ETHICALS
  Company Number: IN-Encube-001769

PATIENT
  Age: 73 Year
  Sex: Male

DRUGS (2)
  1. METRONIDAZOLE [Suspect]
     Active Substance: METRONIDAZOLE
     Indication: Liver abscess
  2. AMOXICILLIN COMP [Concomitant]
     Indication: Liver abscess

REACTIONS (9)
  - Neurotoxicity [Recovered/Resolved]
  - Nervous system disorder [Recovered/Resolved]
  - Dysarthria [Recovered/Resolved]
  - Ataxia [Recovered/Resolved]
  - Intention tremor [Recovered/Resolved]
  - Dysdiadochokinesis [Recovered/Resolved]
  - Dysmetria [Recovered/Resolved]
  - Toxicity to various agents [Recovered/Resolved]
  - Off label use [Unknown]
